FAERS Safety Report 5197614-0 (Version None)
Quarter: 2007Q1

REPORT INFORMATION
  Report Type: 
  Country: None (occurrence: None)
  Receive Date: 20070103
  Receipt Date: 20061222
  Transmission Date: 20070707
  Serious: Yes (Disabling, Other)
  Sender: FDA-Public Use
  Company Number: US-PFIZER INC-2006132910

PATIENT
  Sex: Female
  Weight: 85.7 kg

DRUGS (13)
  1. CHANTIX [Suspect]
     Indication: SMOKING CESSATION THERAPY
     Dates: start: 20060817, end: 20060824
  2. NEORAL [Suspect]
     Indication: IMMUNOSUPPRESSION
  3. CELLCEPT [Suspect]
     Indication: IMMUNOSUPPRESSION
  4. PREDNISONE TAB [Suspect]
     Indication: IMMUNOSUPPRESSION
  5. NORVASC [Concomitant]
  6. BETAPACE [Concomitant]
  7. NEXIUM [Concomitant]
  8. SYNTHROID [Concomitant]
  9. ALPHAGAN [Concomitant]
  10. ZYRTEC-D 12 HOUR [Concomitant]
  11. MIRAPEX [Concomitant]
  12. ADVAIR DISKUS 100/50 [Concomitant]
  13. PREMARIN [Concomitant]

REACTIONS (27)
  - ABDOMINAL MASS [None]
  - ABDOMINAL PAIN UPPER [None]
  - ALANINE AMINOTRANSFERASE INCREASED [None]
  - AMMONIA INCREASED [None]
  - ASPARTATE AMINOTRANSFERASE INCREASED [None]
  - ASTHENIA [None]
  - BEDRIDDEN [None]
  - CONSTIPATION [None]
  - DIARRHOEA [None]
  - DIZZINESS [None]
  - DYSPHAGIA [None]
  - FATIGUE [None]
  - FEELING ABNORMAL [None]
  - HEPATIC ENZYME INCREASED [None]
  - HEPATIC PAIN [None]
  - HEPATOMEGALY [None]
  - HERPES ZOSTER [None]
  - IMMUNE SYSTEM DISORDER [None]
  - IMPAIRED HEALING [None]
  - MACULAR DEGENERATION [None]
  - MENTAL DISORDER [None]
  - NAUSEA [None]
  - PAIN [None]
  - PHARMACEUTICAL PRODUCT COMPLAINT [None]
  - RETCHING [None]
  - SCAB [None]
  - VOMITING [None]
